FAERS Safety Report 7705371-6 (Version None)
Quarter: 2011Q3

REPORT INFORMATION
  Report Type: 
  Country: None (occurrence: None)
  Receive Date: 20110824
  Receipt Date: 20110819
  Transmission Date: 20111222
  Serious: Yes (Death, Other)
  Sender: FDA-Public Use
  Company Number: JP-CEPHALON-2011001806

PATIENT
  Age: 51 Year
  Sex: Female

DRUGS (1)
  1. BENDAMUSTINE HCL [Suspect]
     Indication: NON-HODGKIN'S LYMPHOMA RECURRENT
     Route: 042
     Dates: start: 20110112, end: 20110113

REACTIONS (2)
  - INTERSTITIAL LUNG DISEASE [None]
  - CIRCULATORY COLLAPSE [None]
